FAERS Safety Report 7954763-9 (Version None)
Quarter: 2011Q4

REPORT INFORMATION
  Report Type: 
  Country: None (occurrence: None)
  Receive Date: 20111202
  Receipt Date: 20111129
  Transmission Date: 20120403
  Serious: Yes (Life-Threatening, Hospitalization, Other)
  Sender: FDA-Public Use
  Company Number: US-B.I. PHARMACEUTICALS,INC./RIDGEFIELD-2011-BP-24006BP

PATIENT
  Sex: Male
  Weight: 74.39 kg

DRUGS (10)
  1. ALTACE [Concomitant]
     Dosage: 5 MG
     Route: 048
  2. PROSCAR [Concomitant]
     Dosage: 5 MG
     Route: 048
  3. SAW PALMETTO [Concomitant]
  4. PRADAXA [Suspect]
     Indication: ATRIAL FIBRILLATION
     Dosage: 300 MG
     Dates: start: 20110601, end: 20110904
  5. ASPIRIN [Concomitant]
     Dosage: 81 MG
     Route: 048
  6. ASCORBIC ACID [Concomitant]
     Dosage: 1000 MG
     Route: 048
  7. FOLIC ACID [Concomitant]
     Dosage: 400 MCG
     Route: 048
  8. TOPROL-XL [Concomitant]
     Dosage: 50 MG
     Route: 048
  9. ZOCOR XL [Concomitant]
     Dosage: 40 MG
     Route: 048
  10. NIASPAN [Concomitant]
     Dosage: 1 G
     Route: 048

REACTIONS (1)
  - SUBDURAL HAEMATOMA [None]
